FAERS Safety Report 14968798 (Version 1)
Quarter: 2018Q2

REPORT INFORMATION
  Report Type: Spontaneous
  Country: CN (occurrence: CN)
  Receive Date: 20180604
  Receipt Date: 20180604
  Transmission Date: 20180711
  Serious: Yes (Other)
  Sender: FDA-Public Use
  Company Number: CN-PFIZER INC-2018220813

PATIENT
  Age: 83 Year
  Sex: Male
  Weight: 69 kg

DRUGS (1)
  1. METHYLPREDNISOLONE SODIUM SUCCINATE. [Suspect]
     Active Substance: METHYLPREDNISOLONE SODIUM SUCCINATE
     Indication: INFECTION
     Dosage: 40 MG, 3X/DAY
     Route: 041
     Dates: start: 20180215, end: 20180216

REACTIONS (2)
  - Delirium [Recovered/Resolved]
  - Epinephrine increased [Recovered/Resolved]

NARRATIVE: CASE EVENT DATE: 20180216
